FAERS Safety Report 21796634 (Version 3)
Quarter: 2023Q1

REPORT INFORMATION
  Report Type: Report from Study
  Country: US (occurrence: US)
  Receive Date: 20221229
  Receipt Date: 20230213
  Transmission Date: 20230418
  Serious: Yes (Death, Other)
  Sender: FDA-Public Use
  Company Number: US-ACADIA PHARMACEUTICALS INC.-ACA-2022-PIM-004464

PATIENT
  Age: 78 Year
  Sex: Female

DRUGS (22)
  1. NUPLAZID [Suspect]
     Active Substance: PIMAVANSERIN TARTRATE
     Indication: Parkinson^s disease psychosis
     Dosage: 34 MILLIGRAM, QD
     Route: 048
     Dates: start: 20221207
  2. ACETAMINOPHEN [Concomitant]
     Active Substance: ACETAMINOPHEN
     Dosage: 650 MILLIGRAM
     Route: 054
  3. ALPRAZOLAM [Concomitant]
     Active Substance: ALPRAZOLAM
     Dosage: 0.25 MG, 1 TABLET AS NEEDED
     Route: 048
  4. BISACODYL [Concomitant]
     Active Substance: BISACODYL
     Dosage: 10 MILLIGRAM
     Route: 054
  5. CARBIDOPA\LEVODOPA [Concomitant]
     Active Substance: CARBIDOPA\LEVODOPA
     Dosage: 25/100 MG, 1 TABLET THREE TIMES DAILY
     Route: 048
  6. ESTRADIOL [Concomitant]
     Active Substance: ESTRADIOL
     Dosage: 0.5 MG
  7. GLYCOPYRROLATE [Concomitant]
     Active Substance: GLYCOPYRROLATE
     Indication: Nausea
     Dosage: 1 MILLIGRAM, TAKE ONE TABLET UNDER TONGUE, PER RECTUM EVERY 6 HOURS
  8. GLYCOPYRROLATE [Concomitant]
     Active Substance: GLYCOPYRROLATE
     Indication: Vomiting
  9. HYDROCORTISONE [Concomitant]
     Active Substance: HYDROCORTISONE
     Indication: Erythema
     Dosage: 2.5 %, APPLY TO FACE EVERY NIGHT AT BEDTIME FOR 2 TO 3 NIGTS AS NEEDED
     Route: 061
  10. KETOCONAZOLE [Concomitant]
     Active Substance: KETOCONAZOLE
     Indication: Erythema
     Dosage: 2%, APPLY TO FACE EVERY NIGHT AT BEDTIME
     Route: 061
  11. LORAZEPAM [Concomitant]
     Active Substance: LORAZEPAM
     Indication: Anxiety
     Dosage: 0.5 MG, ONE TABLET BY MOUTH UNDER THE TONGUE PER RECTUM EVERY 4 HOURS AS NEEDED
  12. LORAZEPAM [Concomitant]
     Active Substance: LORAZEPAM
     Indication: Restlessness
     Dosage: 1 MILLIGRAM, 1 TABLET BY MOUTH/ UNDER TONGUE/PER RECTUM EVERY 4 HOURS AS NEEDED
  13. LORAZEPAM [Concomitant]
     Active Substance: LORAZEPAM
     Indication: Agitation
  14. MAGNESIUM CITRATE [Concomitant]
     Active Substance: MAGNESIUM CITRATE
     Dosage: 160 MILLIGRAM, DAILY
     Route: 048
  15. MIRTAZAPINE [Concomitant]
     Active Substance: MIRTAZAPINE
     Dosage: 7.5 MG, TAKE ONE TABLET BY MOUTH DAILY
     Route: 048
  16. MORPHINE HYDROCHLORIDE [Concomitant]
     Active Substance: MORPHINE HYDROCHLORIDE
     Indication: Pain
     Dosage: TAKE 0.25 ML, BY MOUTH UNDER THE TONGUE OR PER RECTUM EVERY 4 HOURS AS NEEDED
     Route: 048
  17. MORPHINE HYDROCHLORIDE [Concomitant]
     Active Substance: MORPHINE HYDROCHLORIDE
     Indication: Dyspnoea
  18. PREMARIN [Concomitant]
     Active Substance: ESTROGENS, CONJUGATED
     Dosage: 0.625 MG, 1 TABLET EVERY DAY BY ORAL ROUTE
  19. PROCHLORPERAZINE MALEATE [Concomitant]
     Active Substance: PROCHLORPERAZINE MALEATE
     Dosage: 10 MILLIGRAM
  20. BISACODYL [Concomitant]
     Active Substance: BISACODYL
     Indication: Constipation
     Dosage: 8.6 MG TO 50 MG, ONE TABLET AT BEDTIME
     Route: 048
  21. TRAZODONE [Concomitant]
     Active Substance: TRAZODONE HYDROCHLORIDE
     Dosage: 50 MILLIGRAM, ONE TABLET AT BEDTIME
     Route: 048
  22. VITAMIN D3 [Concomitant]
     Active Substance: CHOLECALCIFEROL
     Dosage: TAKE 1 (2000U) BY MOUTH DAILY
     Route: 048

REACTIONS (4)
  - Encephalopathy [Recovered/Resolved]
  - Psychotic disorder [Recovered/Resolved]
  - Parkinson^s disease [Recovered/Resolved]
  - Chest pain [Unknown]

NARRATIVE: CASE EVENT DATE: 20221213
